FAERS Safety Report 13945307 (Version 3)
Quarter: 2017Q3

REPORT INFORMATION
  Report Type: Spontaneous
  Country: BR (occurrence: BR)
  Receive Date: 20170907
  Receipt Date: 20170921
  Transmission Date: 20171128
  Serious: Yes (Hospitalization)
  Sender: FDA-Public Use
  Company Number: BR-PFIZER INC-2017386416

PATIENT
  Age: 65 Year
  Sex: Male

DRUGS (4)
  1. CITALOR [Suspect]
     Active Substance: ATORVASTATIN
     Indication: BLOOD PRESSURE ABNORMAL
     Dosage: 10 MG, DAILY (ONE TABLET A DAY)
  2. CITALOR [Suspect]
     Active Substance: ATORVASTATIN
     Indication: LEFT VENTRICULAR FAILURE
  3. XALATAN [Concomitant]
     Active Substance: LATANOPROST
     Indication: PROPHYLAXIS
     Dosage: 2 DROPS DAILY (ONE DROP EACH EYE) FOR 2 WEEKS
  4. COMBODART [Concomitant]
     Active Substance: DUTASTERIDE\TAMSULOSIN
     Indication: BENIGN PROSTATIC HYPERPLASIA
     Dosage: UNK
     Dates: start: 2012

REACTIONS (1)
  - Coronary artery occlusion [Recovered/Resolved]

NARRATIVE: CASE EVENT DATE: 201610
